FAERS Safety Report 7818829-6 (Version None)
Quarter: 2011Q4

REPORT INFORMATION
  Report Type: 
  Country: None (occurrence: None)
  Receive Date: 20111018
  Receipt Date: 20111010
  Transmission Date: 20120403
  Serious: No
  Sender: FDA-Public Use
  Company Number: US-BIOGENIDEC-2011BI039173

PATIENT
  Age: 58 Year
  Sex: Female

DRUGS (1)
  1. TYSABRI [Suspect]
     Indication: MULTIPLE SCLEROSIS
     Route: 042
     Dates: start: 20110620, end: 20110725

REACTIONS (6)
  - MUSCULAR WEAKNESS [None]
  - MUSCLE SPASMS [None]
  - FATIGUE [None]
  - ULCER [None]
  - WEIGHT DECREASED [None]
  - URINARY TRACT INFECTION [None]
